FAERS Safety Report 23750077 (Version 2)
Quarter: 2024Q3

REPORT INFORMATION
  Report Type: Report from Study
  Country: CA (occurrence: CA)
  Receive Date: 20240417
  Receipt Date: 20240814
  Transmission Date: 20241016
  Serious: No
  Sender: TAKEDA
  Company Number: CA-TAKEDA-2024TUS033991

PATIENT
  Sex: Female

DRUGS (11)
  1. VEDOLIZUMAB [Suspect]
     Active Substance: VEDOLIZUMAB
     Indication: Colitis ulcerative
     Dosage: 300 MILLIGRAM
     Route: 042
     Dates: start: 20240328
  2. Salofalk [Concomitant]
     Dosage: 500 MILLIGRAM, BID
     Dates: start: 1991
  3. Salofalk [Concomitant]
     Dosage: 1 GRAM, QD
     Dates: start: 202402
  4. Salofalk [Concomitant]
     Dosage: 1 GRAM, BID
     Route: 048
  5. Salofalk [Concomitant]
     Dosage: 2 GRAM, QD
     Route: 048
  6. SYNTHROID [Concomitant]
     Active Substance: LEVOTHYROXINE SODIUM
     Dosage: UNK
  7. PRISTIQ EXTENDED-RELEASE [Concomitant]
     Active Substance: DESVENLAFAXINE SUCCINATE
     Dosage: UNK
  8. MERCAPTOPURINE [Concomitant]
     Active Substance: MERCAPTOPURINE
     Dosage: 100 MILLIGRAM, QD
     Route: 048
  9. MERCAPTOPURINE [Concomitant]
     Active Substance: MERCAPTOPURINE
     Dosage: UNK UNK, QD
     Dates: start: 2022
  10. MERCAPTOPURINE [Concomitant]
     Active Substance: MERCAPTOPURINE
     Dosage: 125 MILLIGRAM, QD
  11. MERCAPTOPURINE [Concomitant]
     Active Substance: MERCAPTOPURINE
     Dosage: 50 MILLIGRAM, QD
     Dates: start: 2022

REACTIONS (1)
  - Faecal calprotectin increased [Unknown]
